FAERS Safety Report 16636982 (Version 1)
Quarter: 2019Q3

REPORT INFORMATION
  Report Type: Spontaneous
  Country: US (occurrence: US)
  Receive Date: 20190726
  Receipt Date: 20190726
  Transmission Date: 20191004
  Serious: Yes (Hospitalization, Other)
  Sender: FDA-Public Use
  Company Number: US-NOVOPROD-674719

PATIENT
  Age: 71 Year
  Sex: Female

DRUGS (2)
  1. AGGRENOX [Suspect]
     Active Substance: ASPIRIN\DIPYRIDAMOLE
     Indication: ANTICOAGULANT THERAPY
     Dosage: TWICE A DAY
     Route: 048
  2. NOVOLOG [Suspect]
     Active Substance: INSULIN ASPART
     Indication: TYPE 2 DIABETES MELLITUS
     Dosage: SLIDING SCALE
     Route: 058

REACTIONS (8)
  - Cerebrovascular accident [Unknown]
  - Product storage error [Unknown]
  - Hypoaesthesia [Not Recovered/Not Resolved]
  - Visual impairment [Not Recovered/Not Resolved]
  - Coagulation time prolonged [Unknown]
  - Photopsia [Not Recovered/Not Resolved]
  - Headache [Not Recovered/Not Resolved]
  - Hospitalisation [Unknown]

NARRATIVE: CASE EVENT DATE: 20190714
